FAERS Safety Report 5131965-0 (Version None)
Quarter: 2006Q4

REPORT INFORMATION
  Report Type: 
  Country: None (occurrence: None)
  Receive Date: 20061017
  Receipt Date: 20061006
  Transmission Date: 20070319
  Serious: Yes (Life-Threatening, Hospitalization)
  Sender: FDA-Public Use
  Company Number: 163-C5013-06020471

PATIENT
  Age: 66 Year
  Sex: Male
  Weight: 61.6 kg

DRUGS (11)
  1. REVLIMID [Suspect]
     Indication: NON-SMALL CELL LUNG CANCER
     Dosage: 25 MG, ONCE DAILY, ORAL
     Route: 048
     Dates: start: 20060123, end: 20060216
  2. VITAMIN B12 (CYANOCOBALAMIN) (TABLETS) [Concomitant]
  3. MULTIVITAMIN [Concomitant]
  4. ATENOLOL [Concomitant]
  5. LIPITOR [Concomitant]
  6. PREVACID [Concomitant]
  7. ASPIRIN [Concomitant]
  8. PREDNISONE TAB [Concomitant]
  9. OXYGEN (OXYGEN) [Concomitant]
  10. METAMUCIL (METAMUCIL PROCTER + GAMBLE) [Concomitant]
  11. INSULIN (INSULIN) [Concomitant]

REACTIONS (17)
  - ACIDOSIS [None]
  - BASE EXCESS [None]
  - BLOOD ALBUMIN DECREASED [None]
  - BLOOD ALKALINE PHOSPHATASE INCREASED [None]
  - DIAPHRAGMATIC DISORDER [None]
  - GENERAL PHYSICAL CONDITION ABNORMAL [None]
  - HAEMOGLOBIN DECREASED [None]
  - LUNG CONSOLIDATION [None]
  - MALIGNANT NEOPLASM PROGRESSION [None]
  - MENTAL STATUS CHANGES [None]
  - NON-SMALL CELL LUNG CANCER METASTATIC [None]
  - PNEUMONIA [None]
  - PROTEIN TOTAL DECREASED [None]
  - PULMONARY MASS [None]
  - RESPIRATORY ACIDOSIS [None]
  - RESPIRATORY FAILURE [None]
  - TUMOUR NECROSIS [None]
